FAERS Safety Report 8800440 (Version 2)
Quarter: 2012Q4

REPORT INFORMATION
  Report Type: Report from Study
  Country: US (occurrence: US)
  Receive Date: 20120921
  Receipt Date: 20121001
  Transmission Date: 20130627
  Serious: Yes (Hospitalization, Other)
  Sender: FDA-Public Use
  Company Number: US-ACTELION-A-NJ2012-71487

PATIENT
  Age: 78 Year
  Sex: Female

DRUGS (10)
  1. TRACLEER [Suspect]
     Indication: PULMONARY HYPERTENSION
     Dosage: 125 mg, bid
     Route: 048
     Dates: start: 2009
  2. COREG [Concomitant]
  3. WARFARIN [Concomitant]
  4. NEXIUM [Concomitant]
  5. LISINOPRIL [Concomitant]
  6. FOLBEE PLUS [Concomitant]
  7. MEGESTROL [Concomitant]
  8. TYLENOL ARTHRITIS [Concomitant]
  9. TYLENOL PM EXTRA STRENGTH [Concomitant]
  10. HYDROCODONE BITARTRATE AND ACETAMINOPHEN [Concomitant]

REACTIONS (9)
  - Ulcer haemorrhage [Unknown]
  - Pulmonary hypertension [Unknown]
  - Fall [Unknown]
  - Foot fracture [Unknown]
  - Atrial fibrillation [Unknown]
  - Atrial flutter [Unknown]
  - Cardioversion [Unknown]
  - Nodal rhythm [Unknown]
  - Hypotension [Unknown]
